FAERS Safety Report 4936636-9 (Version None)
Quarter: 2006Q1

REPORT INFORMATION
  Report Type: 
  Country: None (occurrence: None)
  Receive Date: 20060307
  Receipt Date: 20060215
  Transmission Date: 20060701
  Serious: Yes (Hospitalization)
  Sender: FDA-Public Use
  Company Number: JP-MERCK-0602USA04904

PATIENT
  Age: 73 Year
  Sex: Male

DRUGS (13)
  1. PEPCID [Concomitant]
     Route: 065
  2. PLETAL [Concomitant]
     Route: 065
  3. PRINIVIL [Suspect]
     Indication: HYPERTENSION
     Route: 048
     Dates: start: 20010101, end: 20060101
  4. TOMIRON [Concomitant]
     Indication: NASOPHARYNGITIS
     Route: 065
  5. PRANOPROFEN [Concomitant]
     Indication: NASOPHARYNGITIS
     Route: 065
  6. ZYLORIC [Concomitant]
     Route: 065
  7. DIART [Concomitant]
     Route: 065
  8. NITROL (ISOSORBIDE DINITRATE) [Concomitant]
     Route: 065
  9. LORELCO [Concomitant]
     Route: 065
  10. SIGMART [Concomitant]
     Route: 065
  11. NITRODERM [Concomitant]
     Route: 065
  12. CAMOSTAT MESYLATE [Concomitant]
     Route: 065
  13. TENORMIN [Concomitant]
     Route: 065

REACTIONS (3)
  - DYSPHONIA [None]
  - SWELLING [None]
  - SWOLLEN TONGUE [None]
